FAERS Safety Report 15645613 (Version 3)
Quarter: 2020Q3

REPORT INFORMATION
  Report Type: Report from Study
  Country: US (occurrence: US)
  Receive Date: 20181121
  Receipt Date: 20200715
  Transmission Date: 20201102
  Serious: Yes (Life-Threatening, Hospitalization, Other)
  Sender: FDA-Public Use
  Company Number: US-VERASTEM-2018-00077

PATIENT

DRUGS (4)
  1. VALACYCLOVIR [Concomitant]
     Active Substance: VALACYCLOVIR HYDROCHLORIDE
     Indication: PROPHYLAXIS
     Dosage: 500 MG, QD
     Route: 048
     Dates: start: 20180820
  2. IPI?145 [Suspect]
     Active Substance: DUVELISIB
     Indication: PERIPHERAL T-CELL LYMPHOMA UNSPECIFIED REFRACTORY
     Dosage: 25 MG, BID
     Route: 048
     Dates: start: 20180820, end: 20181017
  3. CEFPODOXIME [Concomitant]
     Active Substance: CEFPODOXIME
     Indication: PNEUMONIA
     Dosage: 200 MG, UNK
     Route: 048
     Dates: start: 20181017
  4. PENTAMIDINE [Concomitant]
     Active Substance: PENTAMIDINE
     Indication: PNEUMONIA
     Dosage: 300 MG, SINGLE
     Dates: start: 20181017

REACTIONS (4)
  - Sepsis [Recovered/Resolved]
  - Pneumonitis [Recovered/Resolved]
  - Hypoxia [Recovered/Resolved]
  - Pneumonia [Recovered/Resolved with Sequelae]

NARRATIVE: CASE EVENT DATE: 20181011
